FAERS Safety Report 7578096-8 (Version None)
Quarter: 2011Q2

REPORT INFORMATION
  Report Type: 
  Country: None (occurrence: None)
  Receive Date: 20110628
  Receipt Date: 20110621
  Transmission Date: 20111010
  Serious: Yes (Life-Threatening, Hospitalization)
  Sender: FDA-Public Use
  Company Number: US-AMGEN-USACT2011031746

PATIENT
  Age: 56 Year

DRUGS (5)
  1. DOXORUBICIN HCL [Concomitant]
     Dosage: 60 MG/M2, Q2WK
     Route: 042
     Dates: start: 20100709, end: 20101014
  2. CYCLOPHOSPHAMIDE [Concomitant]
     Indication: BREAST CANCER
     Dosage: 600 MG/M2, Q2WK
     Route: 042
     Dates: start: 20100709, end: 20101014
  3. PEGFILGRASTIM [Suspect]
     Indication: BREAST CANCER
     Dosage: 6 MG, UNK
     Route: 058
     Dates: start: 20100709
  4. FILGRASTIM [Suspect]
     Indication: BREAST CANCER
     Dosage: 5 A?G/KG, Q2WK
     Route: 058
     Dates: start: 20100709
  5. TAXOL [Concomitant]
     Indication: BREAST CANCER
     Dosage: 80 MG/M2, UNK
     Route: 042
     Dates: start: 20100709, end: 20101014

REACTIONS (2)
  - EMBOLISM [None]
  - SINUS TACHYCARDIA [None]
